FAERS Safety Report 9759780 (Version 1)
Quarter: 2013Q4

REPORT INFORMATION
  Report Type: Spontaneous
  Country: SZ (occurrence: None)
  Receive Date: 20131212
  Receipt Date: 20131212
  Transmission Date: 20140711
  Serious: Yes (Other)
  Sender: FDA-Public Use
  Company Number: 20130693

PATIENT
  Age: 22 Year
  Sex: Female

DRUGS (2)
  1. FERINJECT [Suspect]
     Indication: ANAEMIA
     Dosage: 1000 MG (1 IN 1), INTRAVENOUS DRIP
     Route: 041
     Dates: start: 20120227, end: 20120227
  2. FERINJECT [Suspect]
     Indication: HAEMOGLOBIN DECREASED
     Dosage: 1000 MG (1 IN 1), INTRAVENOUS DRIP
     Route: 041
     Dates: start: 20120227, end: 20120227

REACTIONS (8)
  - Application site reaction [None]
  - Extravasation [None]
  - Pain [None]
  - Infusion site discolouration [None]
  - Erythema [None]
  - Injection site discomfort [None]
  - Haematoma [None]
  - Adjustment disorder with mixed disturbance of emotion and conduct [None]
